FAERS Safety Report 13261876 (Version 2)
Quarter: 2017Q1

REPORT INFORMATION
  Report Type: Spontaneous
  Country: JP (occurrence: JP)
  Receive Date: 20170222
  Receipt Date: 20170321
  Transmission Date: 20170428
  Serious: Yes (Other)
  Sender: FDA-Public Use
  Company Number: JP-JNJFOC-20170218357

PATIENT
  Age: 79 Year
  Sex: Male
  Weight: 55 kg

DRUGS (3)
  1. XEPLION [Suspect]
     Active Substance: PALIPERIDONE PALMITATE
     Indication: SCHIZOPHRENIA
     Route: 030
     Dates: start: 20170116, end: 20170116
  2. ZYPREXA [Suspect]
     Active Substance: OLANZAPINE
     Indication: SCHIZOPHRENIA
     Route: 048
     Dates: start: 20160318, end: 20170207
  3. METHYCOBAL [Suspect]
     Active Substance: METHYLCOBALAMIN
     Indication: SCHIZOPHRENIA
     Route: 048
     Dates: start: 201605, end: 20170213

REACTIONS (2)
  - Rhabdomyolysis [Recovered/Resolved]
  - Hepatic function abnormal [Recovering/Resolving]

NARRATIVE: CASE EVENT DATE: 20170206
